FAERS Safety Report 10067397 (Version 1)
Quarter: 2014Q2

REPORT INFORMATION
  Report Type: Spontaneous
  Country: US (occurrence: US)
  Receive Date: 20140409
  Receipt Date: 20140409
  Transmission Date: 20141212
  Serious: Yes (Other)
  Sender: FDA-Public Use
  Company Number: US-009507513-1404USA004121

PATIENT
  Sex: Female

DRUGS (3)
  1. JANUMET [Suspect]
     Dosage: UNK
     Route: 048
     Dates: start: 2011
  2. JANUVIA [Suspect]
     Dosage: UNK
     Route: 048
     Dates: start: 20080506, end: 200902
  3. BYETTA [Suspect]
     Dosage: UNK
     Dates: start: 20060608, end: 200801

REACTIONS (1)
  - Pancreatic carcinoma [Unknown]
